FAERS Safety Report 4439043-0 (Version None)
Quarter: 2004Q3

REPORT INFORMATION
  Report Type: 
  Country: None (occurrence: None)
  Receive Date: 20040830
  Receipt Date: 20040816
  Transmission Date: 20050211
  Serious: Yes (Death)
  Sender: FDA-Public Use
  Company Number: 2004IC000839

PATIENT
  Age: 70 Year
  Sex: Male

DRUGS (3)
  1. FLUOROURACIL [Suspect]
     Indication: SALIVARY GLAND CANCER STAGE IV
     Dosage: 1250 MG; INTRAVENOUS
     Route: 042
     Dates: start: 20040525, end: 20040529
  2. TAXOTERE [Suspect]
     Indication: SALIVARY GLAND CANCER STAGE IV
     Dosage: 100 MG; INTRAVENOUS
     Route: 042
     Dates: start: 20040525, end: 20040525
  3. CISPLATIN [Suspect]
     Indication: SALIVARY GLAND CANCER
     Dosage: 100 MG; INTRAVENOUS
     Route: 042
     Dates: start: 20040525, end: 20040525

REACTIONS (14)
  - BLOOD PRESSURE DECREASED [None]
  - CARDIO-RESPIRATORY ARREST [None]
  - CULTURE STOOL POSITIVE [None]
  - DIARRHOEA [None]
  - GASTROINTESTINAL EROSION [None]
  - INFECTION IN AN IMMUNOCOMPROMISED HOST [None]
  - MUCOSAL INFLAMMATION [None]
  - NEUTROPENIA [None]
  - PURPURA [None]
  - PYREXIA [None]
  - RASH [None]
  - SEPTIC SHOCK [None]
  - SMALL INTESTINE ULCER [None]
  - STAPHYLOCOCCAL INFECTION [None]
